FAERS Safety Report 7394048-5 (Version None)
Quarter: 2011Q2

REPORT INFORMATION
  Report Type: 
  Country: None (occurrence: None)
  Receive Date: 20110405
  Receipt Date: 20110325
  Transmission Date: 20111010
  Serious: Yes (Hospitalization)
  Sender: FDA-Public Use
  Company Number: RU-BRISTOL-MYERS SQUIBB COMPANY-15625189

PATIENT
  Age: 33 Year
  Sex: Male

DRUGS (4)
  1. ARIPIPRAZOLE [Suspect]
     Indication: SCHIZOPHRENIA
     Route: 048
     Dates: start: 20100126
  2. ARIPIPRAZOLE [Suspect]
     Indication: SCHIZOPHRENIA
     Dosage: ALSO TAKEN 10MG:18MAR2011-ONG,TOTAL DOSE=7 IM DEPOT
     Route: 030
     Dates: start: 20110318
  3. DIAZEPAM [Concomitant]
     Dates: start: 20100727, end: 20100909
  4. ZALEPLON [Concomitant]
     Dates: start: 20110131, end: 20110317

REACTIONS (1)
  - PSYCHOTIC DISORDER [None]
